FAERS Safety Report 7765805-8 (Version None)
Quarter: 2011Q3

REPORT INFORMATION
  Report Type: 
  Country: None (occurrence: None)
  Receive Date: 20110921
  Receipt Date: 20110907
  Transmission Date: 20111222
  Serious: Yes (Hospitalization)
  Sender: FDA-Public Use
  Company Number: JP-BAYER-2011-082328

PATIENT
  Age: 76 Year
  Sex: Male

DRUGS (6)
  1. ASPIRIN [Interacting]
     Dosage: DAILY DOSE 100 MG
     Route: 048
     Dates: start: 20110101
  2. SARPOGRELATE HYDROCHLORIDE [Interacting]
     Dosage: DAILY DOSE 300 MG
     Route: 048
     Dates: start: 20090101, end: 20110101
  3. CLOPIDOGREL BISULFATE [Suspect]
     Dosage: DAILY DOSE 75 MG
     Route: 048
     Dates: start: 20090101, end: 20110101
  4. ASPIRIN [Interacting]
     Dosage: DAILY DOSE 100 MG
     Route: 048
     Dates: start: 20090101, end: 20110101
  5. CEFTRIAXON [Concomitant]
     Indication: PNEUMONIA
     Dosage: DAILY DOSE 2 G
     Route: 041
     Dates: start: 20110101
  6. PAZUFLOXACIN [Concomitant]
     Indication: PNEUMONIA
     Dosage: DAILY DOSE 1000 MG
     Route: 041
     Dates: start: 20110101

REACTIONS (1)
  - PULMONARY ALVEOLAR HAEMORRHAGE [None]
